FAERS Safety Report 11257635 (Version 1)
Quarter: 2015Q3

REPORT INFORMATION
  Report Type: Spontaneous
  Country: US (occurrence: US)
  Receive Date: 20150710
  Receipt Date: 20150710
  Transmission Date: 20151125
  Serious: Yes (Hospitalization)
  Sender: FDA-Public Use
  Company Number: US-ROCHE-1600783

PATIENT
  Sex: Female

DRUGS (3)
  1. ESBRIET [Suspect]
     Active Substance: PIRFENIDONE
     Dosage: 3 CAPSULES (267 MG/EA) TID
     Route: 065
  2. ESBRIET [Suspect]
     Active Substance: PIRFENIDONE
     Dosage: 2 CAPSULES (267 MG/EA) TID
     Route: 065
  3. ESBRIET [Suspect]
     Active Substance: PIRFENIDONE
     Indication: IDIOPATHIC PULMONARY FIBROSIS
     Dosage: 1 CAPSULE (267 MG/EA) TID
     Route: 065
     Dates: start: 2014

REACTIONS (8)
  - Blood pressure increased [Unknown]
  - Cold sweat [Unknown]
  - Dysgeusia [Unknown]
  - Presyncope [Unknown]
  - Dyspepsia [Unknown]
  - Feeling abnormal [Unknown]
  - Cardiac ablation [Unknown]
  - Nausea [Unknown]

NARRATIVE: CASE EVENT DATE: 201501
